FAERS Safety Report 21254627 (Version 1)
Quarter: 2022Q3

REPORT INFORMATION
  Report Type: Report from Study
  Country: US (occurrence: US)
  Receive Date: 20220825
  Receipt Date: 20220825
  Transmission Date: 20221027
  Serious: Yes (Hospitalization, Other)
  Sender: FDA-Public Use
  Company Number: US-AstraZeneca-2022A295284

PATIENT
  Age: 6 Month
  Sex: Male

DRUGS (3)
  1. SYNAGIS [Suspect]
     Active Substance: PALIVIZUMAB
     Indication: Antiviral prophylaxis
     Dosage: 1/ MONTH
     Dates: start: 20220214, end: 20220214
  2. QUATTROVAC [Suspect]
     Active Substance: DIPHTHERIA AND TETANUS TOXOIDS AND ACELLULAR PERTUSSIS VACCINE ADSORBED\POLIOVIRUS VACCINE, INACTIVA
     Indication: Prophylaxis
     Dosage: 1/ MONTH - DIPHTHERIA VACCINE TOXOID
     Dates: start: 20220214, end: 20220214
  3. BCG VACCINE [Suspect]
     Active Substance: BCG VACCINE
     Indication: Antibiotic prophylaxis
     Dates: start: 20220214, end: 20220214

REACTIONS (7)
  - Clonic convulsion [Recovered/Resolved]
  - Seizure [Recovering/Resolving]
  - Vision blurred [Recovered/Resolved]
  - Cyanosis [Recovered/Resolved]
  - Joint ankylosis [Recovered/Resolved]
  - Oral disorder [Recovered/Resolved]
  - Vomiting [Recovered/Resolved]

NARRATIVE: CASE EVENT DATE: 20220222
